FAERS Safety Report 6697566-8 (Version None)
Quarter: 2010Q2

REPORT INFORMATION
  Report Type: 
  Country: None (occurrence: None)
  Receive Date: 20100426
  Receipt Date: 20100208
  Transmission Date: 20101027
  Serious: No
  Sender: FDA-Public Use
  Company Number: US-ABBOTT-10P-163-0625828-00

PATIENT
  Sex: Male

DRUGS (5)
  1. AZMACORT [Suspect]
     Indication: ASTHMA
     Dosage: TWO PUFFS IN AM AND TWO IN PM
     Dates: start: 19910101, end: 20091201
  2. ALVESCO [Suspect]
     Indication: ASTHMA
     Dates: start: 20091201, end: 20100101
  3. FLOVENT [Suspect]
     Indication: ASTHMA
     Dosage: DISKUS- 4 IN ONE DAY
     Dates: start: 20100201
  4. ALLERGY SHOTS [Concomitant]
     Indication: HYPERSENSITIVITY
     Dosage: UNKNOWN
  5. MAXAIR [Concomitant]
     Indication: ASTHMA
     Dosage: RESCUE INHALER AS NEEDED

REACTIONS (2)
  - CHEST DISCOMFORT [None]
  - DYSPNOEA [None]
